FAERS Safety Report 6107119-8 (Version None)
Quarter: 2009Q1

REPORT INFORMATION
  Report Type: 
  Country: None (occurrence: None)
  Receive Date: 20090309
  Receipt Date: 20090225
  Transmission Date: 20090719
  Serious: Yes (Other)
  Sender: FDA-Public Use
  Company Number: PHHY2008MX11175

PATIENT
  Sex: Female

DRUGS (3)
  1. DIOVAN HCT [Suspect]
     Indication: HYPERTENSION
     Dosage: 160 MG/25 MG PER DAY
     Route: 048
     Dates: start: 20030101
  2. INSULIN [Concomitant]
  3. NIFUROXAZIDE [Concomitant]

REACTIONS (9)
  - ACCIDENT [None]
  - BLOOD GLUCOSE INCREASED [None]
  - DIARRHOEA [None]
  - FOOT OPERATION [None]
  - GAIT DISTURBANCE [None]
  - HYPERTENSION [None]
  - HYPOGLYCAEMIA [None]
  - RENAL DISORDER [None]
  - VOMITING [None]
